FAERS Safety Report 23793586 (Version 1)
Quarter: 2024Q2

REPORT INFORMATION
  Report Type: Spontaneous
  Country: CN (occurrence: CN)
  Receive Date: 20240429
  Receipt Date: 20240429
  Transmission Date: 20240715
  Serious: Yes (Other)
  Sender: FDA-Public Use
  Company Number: CN-BoehringerIngelheim-2024-BI-023425

PATIENT
  Age: 59 Year
  Sex: Male
  Weight: 70 kg

DRUGS (3)
  1. ALTEPLASE [Suspect]
     Active Substance: ALTEPLASE
     Indication: Cerebral infarction
     Dosage: DOSE 63 MG; FIRSTLY 10% VIA INTRAVENOUS INJECTION,
     Route: 042
     Dates: start: 20240402, end: 20240402
  2. ALTEPLASE [Suspect]
     Active Substance: ALTEPLASE
     Dosage: DOSE 63 MG; THE REST VIA INTRAVENOUS INJECTION VIA MICRO-PUMP FOR 1 H
     Route: 042
     Dates: start: 20240402, end: 20240402
  3. SODIUM CHLORIDE [Concomitant]
     Active Substance: SODIUM CHLORIDE
     Indication: Drug therapy
     Route: 042
     Dates: start: 20240402, end: 20240402

REACTIONS (3)
  - Rash [Recovering/Resolving]
  - Erythema [Recovering/Resolving]
  - Pruritus [Recovering/Resolving]

NARRATIVE: CASE EVENT DATE: 20240402
